FAERS Safety Report 9162259 (Version 5)
Quarter: 2014Q4

REPORT INFORMATION
  Report Type: Spontaneous
  Country: US (occurrence: None)
  Receive Date: 20130222
  Receipt Date: 20141118
  Transmission Date: 20150529
  Serious: Yes (Other)
  Sender: FDA-Public Use
  Company Number: JPI-P-029914

PATIENT
  Age: 45 Year
  Sex: Female

DRUGS (4)
  1. XYREM [Suspect]
     Active Substance: SODIUM OXYBATE
     Indication: NARCOLEPSY
     Dosage: 3 GM  (1.5 GM, 2 IN 1 D), ORAL
     Route: 048
     Dates: start: 20090408
  2. FENTANYL (FENTANYL) [Concomitant]
     Active Substance: FENTANYL
  3. XYREM [Suspect]
     Active Substance: SODIUM OXYBATE
     Indication: CATAPLEXY
     Dosage: 3 GM  (1.5 GM, 2 IN 1 D), ORAL
     Route: 048
     Dates: start: 20090408
  4. OXYCODONE AND ACETAMINOPHEN [Concomitant]
     Active Substance: ACETAMINOPHEN\OXYCODONE\OXYCODONE HYDROCHLORIDE

REACTIONS (13)
  - Back injury [None]
  - Back pain [None]
  - Seizure [None]
  - Drug dependence [None]
  - Unresponsive to stimuli [None]
  - Intentional product misuse [None]
  - Spinal nerve stimulator implantation [None]
  - Spinal fusion surgery [None]
  - Surgery [None]
  - Therapy cessation [None]
  - Fall [None]
  - Anxiety [None]
  - Back disorder [None]

NARRATIVE: CASE EVENT DATE: 2010
